FAERS Safety Report 5749872-9 (Version None)
Quarter: 2008Q2

REPORT INFORMATION
  Report Type: 
  Country: None (occurrence: None)
  Receive Date: 20080527
  Receipt Date: 20080515
  Transmission Date: 20081010
  Serious: Yes (Hospitalization)
  Sender: FDA-Public Use
  Company Number: FR-ROCHE-564852

PATIENT
  Weight: 3.5 kg

DRUGS (6)
  1. VALIUM [Suspect]
     Indication: SCHIZOPHRENIA
     Dates: start: 20070615, end: 20080312
  2. RIVOTRIL [Suspect]
     Indication: SCHIZOPHRENIA
     Dates: start: 20080312, end: 20080312
  3. LOXAPINE HCL [Suspect]
     Indication: SCHIZOPHRENIA
     Dates: start: 20080312, end: 20080312
  4. OXAZEPAM [Suspect]
     Indication: SCHIZOPHRENIA
     Dates: start: 20070615, end: 20080312
  5. HALDOL [Suspect]
     Indication: SCHIZOPHRENIA
     Dates: start: 20070615, end: 20080312
  6. LARGACTIL [Suspect]
     Indication: DRUG USE FOR UNKNOWN INDICATION

REACTIONS (2)
  - HYPOTONIA [None]
  - SOMNOLENCE [None]
